FAERS Safety Report 7319234-1 (Version None)
Quarter: 2011Q1

REPORT INFORMATION
  Report Type: 
  Country: None (occurrence: None)
  Receive Date: 20110228
  Receipt Date: 20110217
  Transmission Date: 20110831
  Serious: Yes (Hospitalization)
  Sender: FDA-Public Use
  Company Number: PHHO2011NL02163

PATIENT
  Sex: Female
  Weight: 17.8 kg

DRUGS (7)
  1. INDOMETHACIN [Concomitant]
     Indication: JUVENILE ARTHRITIS
     Dosage: UNK
     Dates: start: 20081201
  2. BLINDED NO TREATMENT RECEIVED [Suspect]
     Indication: JUVENILE ARTHRITIS
     Dosage: NO TREATMENT
  3. ACZ885 [Suspect]
     Indication: JUVENILE ARTHRITIS
     Dosage: 70MG
     Route: 058
     Dates: start: 20100111
  4. BLINDED PLACEBO [Suspect]
     Indication: JUVENILE ARTHRITIS
     Dosage: NO TREATMENT
  5. METHOTREXATE [Concomitant]
     Indication: JUVENILE ARTHRITIS
     Dosage: UNK
     Dates: start: 20081201
  6. FOLIC ACID [Concomitant]
     Dosage: UNK
     Dates: start: 20081201
  7. BLINDED ACZ885 [Suspect]
     Indication: JUVENILE ARTHRITIS
     Dosage: NO TREATMENT

REACTIONS (5)
  - JUVENILE ARTHRITIS [None]
  - PYREXIA [None]
  - MALAISE [None]
  - COUGH [None]
  - ARTHRALGIA [None]
